FAERS Safety Report 7041308-3 (Version None)
Quarter: 2010Q4

REPORT INFORMATION
  Report Type: 
  Country: None (occurrence: None)
  Receive Date: 20101013
  Receipt Date: 20101007
  Transmission Date: 20110411
  Serious: Yes (Hospitalization)
  Sender: FDA-Public Use
  Company Number: US-BRACCO-005236

PATIENT
  Sex: Female

DRUGS (8)
  1. GEODON [Concomitant]
  2. KLONOPIN [Concomitant]
  3. SYMBICORT [Concomitant]
     Dosage: 2 PUFFS DAILY
     Route: 065
  4. MULTIHANCE [Suspect]
     Indication: NUCLEAR MAGNETIC RESONANCE IMAGING
     Dates: start: 20100922, end: 20100922
  5. MULTIHANCE [Suspect]
     Indication: OVARIAN CYST
     Dates: start: 20100922, end: 20100922
  6. VICODIN [Concomitant]
  7. PROAIR HFA [Concomitant]
  8. PROPOFOL [Concomitant]
     Indication: RESPIRATORY PARALYSIS
     Route: 041
     Dates: start: 20100922

REACTIONS (2)
  - ANAPHYLACTIC SHOCK [None]
  - HYPOKALAEMIA [None]
